FAERS Safety Report 18548459 (Version 4)
Quarter: 2020Q4

REPORT INFORMATION
  Report Type: Spontaneous
  Country: JP (occurrence: JP)
  Receive Date: 20201125
  Receipt Date: 20201229
  Transmission Date: 20210114
  Serious: No
  Sender: FDA-Public Use
  Company Number: JP-JNJFOC-20201126154

PATIENT
  Age: 65 Year
  Sex: Female
  Weight: 32.8 kg

DRUGS (1)
  1. SIMPONI [Suspect]
     Active Substance: GOLIMUMAB
     Indication: RHEUMATOID ARTHRITIS
     Dosage: GOLIMUMAB (GENETICAL RECOMBINATION):50MG
     Route: 058
     Dates: start: 20201110, end: 20201110

REACTIONS (3)
  - Administration site pain [Recovered/Resolved]
  - Needle issue [Unknown]
  - Administration site haemorrhage [Recovered/Resolved]

NARRATIVE: CASE EVENT DATE: 20201110
